APPROVED DRUG PRODUCT: LANREOTIDE ACETATE
Active Ingredient: LANREOTIDE ACETATE
Strength: EQ 60MG BASE/0.2ML (EQ 60MG BASE/0.2ML)
Dosage Form/Route: SOLUTION;SUBCUTANEOUS
Application: N215395 | Product #001
Applicant: INVAGEN PHARMACEUTICALS INC
Approved: Dec 17, 2021 | RLD: Yes | RS: Yes | Type: RX